FAERS Safety Report 7243805-4 (Version None)
Quarter: 2011Q1

REPORT INFORMATION
  Report Type: 
  Country: None (occurrence: None)
  Receive Date: 20110125
  Receipt Date: 20110111
  Transmission Date: 20110831
  Serious: Yes (Other)
  Sender: FDA-Public Use
  Company Number: PHHY2011GB03249

PATIENT
  Age: 8 Year

DRUGS (3)
  1. METHOTREXATE [Suspect]
     Route: 065
  2. DEXAMETHASONE [Suspect]
     Dosage: 2 MG, UNK
  3. TRIAMCINOLONE [Suspect]
     Indication: IRIDOCYCLITIS
     Dosage: 20 MG, UNK

REACTIONS (2)
  - IRIDOCYCLITIS [None]
  - CUSHINGOID [None]
